FAERS Safety Report 7700326-X (Version None)
Quarter: 2011Q3

REPORT INFORMATION
  Report Type: 
  Country: None (occurrence: None)
  Receive Date: 20110822
  Receipt Date: 20110812
  Transmission Date: 20111222
  Serious: Yes (Hospitalization, Other)
  Sender: FDA-Public Use
  Company Number: PHEH2007US04455

PATIENT
  Sex: Female
  Weight: 86.621 kg

DRUGS (32)
  1. EFFEXOR XR [Concomitant]
  2. ENALAPRIL MALEATE [Concomitant]
  3. LASIX [Concomitant]
  4. SYNTHROID [Concomitant]
  5. VICODIN [Concomitant]
  6. CALCIUM WITH VITAMIN D [Concomitant]
  7. ZOCOR [Concomitant]
  8. POTASSIUM ACETATE [Concomitant]
  9. CELEBREX [Concomitant]
  10. TORADOL [Concomitant]
  11. ZOMETA [Suspect]
     Indication: BREAST CANCER
  12. ATENOLOL [Concomitant]
  13. ZYRTEC [Concomitant]
  14. DEXAMETHASONE [Concomitant]
     Dosage: 4 MG, TID
     Route: 048
     Dates: start: 20090109
  15. CENTRUM SILVER [Concomitant]
     Dosage: 1 DF, QD
  16. ANTIBIOTICS [Suspect]
  17. ARIMIDEX [Concomitant]
  18. DEXAMETHASONE [Concomitant]
     Dosage: 4 MG, BID
     Dates: start: 20090114
  19. AREDIA [Suspect]
     Indication: METASTASES TO BONE
     Dosage: UNK UKN, QMO
  20. NEXIUM [Concomitant]
  21. AMITRIPTYLINE HCL [Concomitant]
  22. TYLENOL PM [Concomitant]
  23. PERCOCET [Concomitant]
  24. TAXOTERE [Concomitant]
  25. ZOFRAN [Concomitant]
     Route: 042
  26. AMOXICILLIN [Concomitant]
  27. EFFEXOR [Concomitant]
  28. ASPIRIN [Concomitant]
  29. LIPITOR [Concomitant]
  30. ACETAMINOPHEN PM [Concomitant]
  31. DICLOFENAC SODIUM [Concomitant]
     Dosage: 50 MG, BID
     Route: 048
  32. COUMADIN [Concomitant]

REACTIONS (76)
  - MUCOSAL INFLAMMATION [None]
  - DEFORMITY [None]
  - EMOTIONAL DISTRESS [None]
  - ANXIETY [None]
  - JAW DISORDER [None]
  - PARAESTHESIA ORAL [None]
  - ANAEMIA [None]
  - ABSCESS [None]
  - ENTHESOPATHY [None]
  - DIPLOPIA [None]
  - HOT FLUSH [None]
  - HYPERCHOLESTEROLAEMIA [None]
  - OSTEONECROSIS OF JAW [None]
  - ORAL PAIN [None]
  - SPINAL FRACTURE [None]
  - GASTROOESOPHAGEAL REFLUX DISEASE [None]
  - OVARIAN MASS [None]
  - TINEA PEDIS [None]
  - JOINT EFFUSION [None]
  - SYNOVITIS [None]
  - DIZZINESS [None]
  - DYSPNOEA EXERTIONAL [None]
  - OSTEOMALACIA [None]
  - TOOTH FRACTURE [None]
  - OSTEOARTHRITIS [None]
  - EATING DISORDER [None]
  - IRON DEFICIENCY ANAEMIA [None]
  - DIARRHOEA [None]
  - SCIATICA [None]
  - METASTASES TO MENINGES [None]
  - MUSCULAR WEAKNESS [None]
  - GINGIVAL DISORDER [None]
  - OSTEOMYELITIS [None]
  - SPINAL OSTEOARTHRITIS [None]
  - PAIN IN EXTREMITY [None]
  - DYSURIA [None]
  - ASTHMA [None]
  - OSTEOPOROSIS [None]
  - DECREASED APPETITE [None]
  - CONJUNCTIVITIS [None]
  - OESOPHAGEAL DISORDER [None]
  - COMPRESSION FRACTURE [None]
  - KYPHOSIS [None]
  - POSTMENOPAUSAL HAEMORRHAGE [None]
  - MENTAL STATUS CHANGES [None]
  - URINARY INCONTINENCE [None]
  - CANDIDIASIS [None]
  - PAIN [None]
  - HYPOPHAGIA [None]
  - GENERAL PHYSICAL HEALTH DETERIORATION [None]
  - SWELLING FACE [None]
  - IMPAIRED HEALING [None]
  - WEIGHT DECREASED [None]
  - CELLULITIS [None]
  - ARRHYTHMIA [None]
  - HEADACHE [None]
  - LUMBAR RADICULOPATHY [None]
  - BONE DISORDER [None]
  - COLITIS [None]
  - ARTHRALGIA [None]
  - MASS [None]
  - SEPSIS [None]
  - HYPOKALAEMIA [None]
  - PANCYTOPENIA [None]
  - CHOLELITHIASIS [None]
  - PERIODONTITIS [None]
  - INFECTION [None]
  - PYREXIA [None]
  - LYMPH GLAND INFECTION [None]
  - PERONEAL NERVE PALSY [None]
  - BACK PAIN [None]
  - DEHYDRATION [None]
  - BRONCHITIS [None]
  - CATARACT [None]
  - STAPHYLOCOCCAL INFECTION [None]
  - URINARY TRACT INFECTION [None]
